FAERS Safety Report 9498251 (Version 1)
Quarter: 2013Q3

REPORT INFORMATION
  Report Type: Spontaneous
  Country: US (occurrence: US)
  Receive Date: 20130904
  Receipt Date: 20130904
  Transmission Date: 20140515
  Serious: Yes (Hospitalization, Other)
  Sender: FDA-Public Use
  Company Number: US-COVIDIEN/TYCO HEALTHCARE/MALLINCKRODT-T201304224

PATIENT
  Age: 22 Year
  Sex: Female

DRUGS (2)
  1. GABLOFEN [Suspect]
     Indication: MUSCLE SPASTICITY
     Dosage: 230 UNK, UNK
     Route: 037
  2. BACLOFEN [Concomitant]
     Dosage: UNK
     Route: 048

REACTIONS (4)
  - Drug withdrawal syndrome [Unknown]
  - Underdose [Unknown]
  - Pruritus [Unknown]
  - Vomiting [Unknown]
